FAERS Safety Report 9486565 (Version 4)
Quarter: 2013Q3

REPORT INFORMATION
  Report Type: Report from Study
  Country: BR (occurrence: BR)
  Receive Date: 20130829
  Receipt Date: 20130930
  Transmission Date: 20140515
  Serious: Yes (Hospitalization, Other)
  Sender: FDA-Public Use
  Company Number: PHHY2013BR094026

PATIENT
  Age: 75 Year
  Sex: Male
  Weight: 90 kg

DRUGS (3)
  1. ACLASTA [Suspect]
     Indication: OSTEITIS DEFORMANS
     Dosage: 5 MG, A YEAR
     Route: 042
     Dates: start: 2009
  2. ACLASTA [Suspect]
     Dosage: 5 MG, YEARLY
     Route: 042
     Dates: start: 2010
  3. ACLASTA [Suspect]
     Dosage: 5 MG, YEARLY
     Route: 042
     Dates: start: 20120822

REACTIONS (4)
  - Femur fracture [Recovering/Resolving]
  - Stress fracture [Recovering/Resolving]
  - Pain in extremity [Recovering/Resolving]
  - Coronary artery thrombosis [Recovering/Resolving]
